FAERS Safety Report 8791070 (Version 1)
Quarter: 2012Q4

REPORT INFORMATION
  Report Type: Spontaneous
  Country: US (occurrence: None)
  Receive Date: 20120912
  Receipt Date: 20120912
  Transmission Date: 20130627
  Serious: Yes (Hospitalization)
  Sender: FDA-Public Use
  Company Number: 003-090

PATIENT
  Age: 42 Year
  Sex: Male

DRUGS (1)
  1. CROFAB [Suspect]
     Indication: SNAKE BITE
     Dosage: 16 vials total
     Dates: start: 20120830, end: 20120902

REACTIONS (4)
  - Swelling [None]
  - Pain [None]
  - Ecchymosis [None]
  - Condition aggravated [None]
